FAERS Safety Report 24141395 (Version 5)
Quarter: 2024Q3

REPORT INFORMATION
  Report Type: Report from Study
  Country: JP (occurrence: JP)
  Receive Date: 20240726
  Receipt Date: 20240924
  Transmission Date: 20241017
  Serious: Yes (Other)
  Sender: EISAI
  Company Number: JP-Eisai-202403491_LEN-EC_P_1

PATIENT
  Age: 55 Year
  Sex: Female
  Weight: 62 kg

DRUGS (18)
  1. LENVIMA [Suspect]
     Active Substance: LENVATINIB
     Indication: Endometrial cancer
     Route: 048
     Dates: start: 20230920, end: 20230929
  2. LENVIMA [Suspect]
     Active Substance: LENVATINIB
     Route: 048
     Dates: start: 20231005, end: 20231008
  3. LENVIMA [Suspect]
     Active Substance: LENVATINIB
     Route: 048
     Dates: start: 20231011, end: 20231101
  4. LENVIMA [Suspect]
     Active Substance: LENVATINIB
     Route: 048
     Dates: start: 20231110
  5. KEYTRUDA [Suspect]
     Active Substance: PEMBROLIZUMAB
     Indication: Endometrial cancer
     Dosage: FREQUENCY UNKNOWN
     Route: 042
     Dates: start: 20230920
  6. KEYTRUDA [Suspect]
     Active Substance: PEMBROLIZUMAB
     Dosage: FREQUENCY UNKNOWN
     Route: 042
     Dates: start: 20231011
  7. KEYTRUDA [Suspect]
     Active Substance: PEMBROLIZUMAB
     Dosage: FREQUENCY UNKNOWN
     Route: 042
     Dates: start: 20231116
  8. KEYTRUDA [Suspect]
     Active Substance: PEMBROLIZUMAB
     Dosage: FREQUENCY UNKNOWN
     Route: 042
     Dates: start: 20231206
  9. KEYTRUDA [Suspect]
     Active Substance: PEMBROLIZUMAB
     Dosage: FREQUENCY UNKNOWN
     Route: 042
     Dates: start: 20231228
  10. KEYTRUDA [Suspect]
     Active Substance: PEMBROLIZUMAB
     Dosage: FREQUENCY UNKNOWN
     Route: 042
     Dates: start: 20240117
  11. KEYTRUDA [Suspect]
     Active Substance: PEMBROLIZUMAB
     Dosage: FREQUENCY UNKNOWN
     Route: 042
     Dates: start: 20240207
  12. KEYTRUDA [Suspect]
     Active Substance: PEMBROLIZUMAB
     Dosage: FREQUENCY UNKNOWN
     Route: 042
     Dates: start: 20240306
  13. KEYTRUDA [Suspect]
     Active Substance: PEMBROLIZUMAB
     Dosage: FREQUENCY UNKNOWN
     Route: 042
     Dates: start: 20240403
  14. METHOTREXATE [Concomitant]
     Active Substance: METHOTREXATE
     Indication: Rheumatoid arthritis
     Route: 048
     Dates: start: 20231117, end: 20231118
  15. METHOTREXATE [Concomitant]
     Active Substance: METHOTREXATE
     Dates: start: 20231201, end: 20231205
  16. METHOTREXATE [Concomitant]
     Active Substance: METHOTREXATE
     Dates: start: 20231229
  17. ACTEMRA [Concomitant]
     Active Substance: TOCILIZUMAB
     Indication: Rheumatoid arthritis
     Route: 058
     Dates: start: 20240313
  18. CORTRIL [Concomitant]
     Active Substance: HYDROCORTISONE
     Indication: Rheumatoid arthritis
     Route: 048
     Dates: start: 20231101

REACTIONS (1)
  - Cytokine release syndrome [Recovered/Resolved]

NARRATIVE: CASE EVENT DATE: 20230924
